FAERS Safety Report 24135568 (Version 1)
Quarter: 2024Q3

REPORT INFORMATION
  Report Type: Spontaneous
  Country: PT (occurrence: PT)
  Receive Date: 20240725
  Receipt Date: 20240725
  Transmission Date: 20241017
  Serious: Yes (Other)
  Sender: ROCHE
  Company Number: PT-002147023-NVSC2024PT149151

PATIENT

DRUGS (2)
  1. OMALIZUMAB [Suspect]
     Active Substance: OMALIZUMAB
     Indication: Product used for unknown indication
     Dosage: 300 MG (EVERY 4 WEEKS)
     Route: 065
  2. OMALIZUMAB [Suspect]
     Active Substance: OMALIZUMAB
     Dosage: 300 MG (EVERY 3 WEEKS)
     Route: 065

REACTIONS (2)
  - Urticarial vasculitis [Recovered/Resolved]
  - Off label use [Unknown]
